FAERS Safety Report 11844889 (Version 3)
Quarter: 2017Q4

REPORT INFORMATION
  Report Type: Spontaneous
  Country: JP (occurrence: JP)
  Receive Date: 20151217
  Receipt Date: 20171122
  Transmission Date: 20180320
  Serious: Yes (Hospitalization, Other)
  Sender: FDA-Public Use
  Company Number: JP-ASTRAZENECA-2015SE37153

PATIENT
  Age: 43 Year
  Sex: Male
  Weight: 70 kg

DRUGS (10)
  1. MILLIS [Concomitant]
     Route: 062
     Dates: start: 20150409, end: 20150413
  2. CRESTOR [Suspect]
     Active Substance: ROSUVASTATIN CALCIUM
     Indication: DYSLIPIDAEMIA
     Route: 048
     Dates: start: 20150410, end: 20150412
  3. SEISHOKU [Concomitant]
     Active Substance: SODIUM CHLORIDE
     Dosage: 2500.0ML UNKNOWN
     Route: 042
     Dates: start: 20150411, end: 20150417
  4. BLOPRESS [Suspect]
     Active Substance: CANDESARTAN CILEXETIL
     Indication: VENTRICULAR REMODELLING
     Route: 048
     Dates: start: 20150410, end: 20150412
  5. MAGMITT [Concomitant]
     Active Substance: MAGNESIUM OXIDE
     Dosage: 990.0MG UNKNOWN
     Route: 048
     Dates: start: 20150410, end: 20150413
  6. NICORANDIL [Concomitant]
     Active Substance: NICORANDIL
     Dosage: DOSE UNKNOWN
     Route: 041
     Dates: start: 20150403, end: 20150413
  7. EFIENT [Concomitant]
     Active Substance: PRASUGREL HYDROCHLORIDE
     Dosage: 3.75 MG, DAILY (NUMBER OF SEPERATE DOSAGES UNKNOWN, THE FIRST DOSE WAS 20 MG DAILY)
     Route: 048
     Dates: start: 20170409
  8. LANSOPRAZOLE. [Suspect]
     Active Substance: LANSOPRAZOLE
     Indication: GASTRIC DISORDER
     Route: 048
     Dates: start: 20150410, end: 20150413
  9. BAYASPIRIN [Concomitant]
     Active Substance: ASPIRIN
     Dosage: 100 MG DAILY  (NUMBER OF SEPERATE DOSAGES UNKNOWN, THE FIRST DOSE WAS 20 MG DAILY)
     Route: 048
     Dates: start: 20150409
  10. HEPARIN SODIUM. [Concomitant]
     Active Substance: HEPARIN SODIUM
     Dosage: DOSE UNKNOWN
     Route: 065
     Dates: start: 20150411, end: 20150413

REACTIONS (1)
  - Rhabdomyolysis [Recovered/Resolved]

NARRATIVE: CASE EVENT DATE: 20150411
